FAERS Safety Report 10042545 (Version 3)
Quarter: 2016Q1

REPORT INFORMATION
  Report Type: Report from Study
  Country: HU (occurrence: HU)
  Receive Date: 20140327
  Receipt Date: 20160215
  Transmission Date: 20160525
  Serious: Yes (Death)
  Sender: FDA-Public Use
  Company Number: HU-UCBSA-114537

PATIENT
  Sex: Female
  Weight: 65 kg

DRUGS (8)
  1. INSULIN [Concomitant]
     Active Substance: INSULIN NOS
     Indication: DIABETES MELLITUS
     Dates: start: 2000
  2. VIT. D3 OIL [Concomitant]
     Indication: RHEUMATOID ARTHRITIS
     Dosage: 4 DROPS
     Route: 048
     Dates: start: 20110901
  3. L-TYROXIN [Concomitant]
     Indication: HYPOTHYROIDISM
     Dosage: 40 MG, ONCE DAILY (QD)
     Route: 048
     Dates: start: 2000
  4. SERETIDE [Concomitant]
     Active Substance: FLUTICASONE FUROATE\SALMETEROL XINAFOATE
     Indication: ASTHMA
     Dosage: 1 INHALATION DAILY
     Dates: start: 20130121
  5. LEFLUNOMIDE. [Concomitant]
     Active Substance: LEFLUNOMIDE
     Indication: RHEUMATOID ARTHRITIS
     Dosage: 10 MG, ONCE DAILY (QD)
     Route: 048
     Dates: start: 20110901
  6. CERTOLIZUMAB PEGOL RA [Suspect]
     Active Substance: CERTOLIZUMAB PEGOL
     Indication: RHEUMATOID ARTHRITIS
     Dosage: 200 MG, EV 2 WEEKS(QOW)
     Route: 058
     Dates: start: 20110901
  7. SALBUTAMOL [Concomitant]
     Active Substance: ALBUTEROL
     Indication: ASTHMA
     Dosage: AS NEEDED INHALATION
     Dates: start: 20130121
  8. PANTOPRAZOL [Concomitant]
     Active Substance: PANTOPRAZOLE SODIUM
     Indication: GASTROOESOPHAGEAL REFLUX DISEASE
     Dosage: 100 MG, ONCE DAILY (QD)
     Route: 048
     Dates: start: 2000

REACTIONS (2)
  - Myocardial necrosis [Fatal]
  - Cardiac disorder [Fatal]
